FAERS Safety Report 18525842 (Version 1)
Quarter: 2020Q4

REPORT INFORMATION
  Report Type: Spontaneous
  Country: DE (occurrence: DE)
  Receive Date: 20201120
  Receipt Date: 20201120
  Transmission Date: 20210114
  Serious: Yes (Other)
  Sender: FDA-Public Use
  Company Number: DE-TEVA-2020-DE-1849328

PATIENT
  Age: 76 Year
  Sex: Male
  Weight: 97 kg

DRUGS (7)
  1. PANTOPRAZOL ACIS 20 MG [Concomitant]
     Dosage: 20 MILLIGRAM DAILY;
     Dates: start: 200511
  2. TORASEMID AAA-PHARMA 10 MG [Concomitant]
     Dosage: 20 MILLIGRAM DAILY;
     Dates: start: 202007
  3. L THYROX HEXAL 50 [Concomitant]
     Active Substance: LEVOTHYROXINE SODIUM
     Dosage: 1 DOSAGE FORMS DAILY;
     Dates: start: 201611
  4. CANDESARTAN ZENTIVA 4 MG [Concomitant]
     Dosage: 4 MILLIGRAM DAILY;
     Dates: start: 201911
  5. BISOPROLOL ABZ 5 MG TABLETTEN [Suspect]
     Active Substance: BISOPROLOL
     Dosage: 5 MILLIGRAM DAILY;
     Dates: start: 200511
  6. SIMVASTATIN ATID 20 MG [Concomitant]
     Dosage: 20 MILLIGRAM DAILY;
     Dates: start: 200011
  7. LIXIANA 60 MG [Concomitant]
     Active Substance: EDOXABAN TOSYLATE
     Dosage: 60 MILLIGRAM DAILY;
     Dates: start: 202009

REACTIONS (2)
  - Diabetes mellitus [Not Recovered/Not Resolved]
  - Weight increased [Not Recovered/Not Resolved]

NARRATIVE: CASE EVENT DATE: 201811
